FAERS Safety Report 8565580-3 (Version None)
Quarter: 2012Q3

REPORT INFORMATION
  Report Type: 
  Country: None (occurrence: None)
  Receive Date: 20120803
  Receipt Date: 20120727
  Transmission Date: 20120928
  Serious: Yes (Hospitalization, Other)
  Sender: FDA-Public Use
  Company Number: US-PFIZER INC-2011028200

PATIENT
  Sex: Female

DRUGS (9)
  1. VISTARIL [Concomitant]
     Dosage: 75 MG, AT BEDTIME
     Route: 048
     Dates: start: 20090123, end: 20090323
  2. PRENATAL S [Concomitant]
     Dosage: ONE TABLET DAILY
     Route: 048
     Dates: start: 20090102, end: 20090302
  3. GEODON [Suspect]
     Indication: PSYCHOTIC DISORDER
     Dosage: UNK
     Route: 048
     Dates: start: 20090101, end: 20090301
  4. GUAIFENESIN [Concomitant]
     Dosage: 600 MG, 2X/DAY
     Route: 048
     Dates: start: 20090102, end: 20090302
  5. LAMICTAL [Concomitant]
     Dosage: UNK
     Route: 048
     Dates: start: 20090101, end: 20090301
  6. BENADRYL [Concomitant]
     Dosage: 25 MG AT BEDTIME
     Route: 048
     Dates: start: 20090124, end: 20090324
  7. KLONOPIN [Concomitant]
     Dosage: 0.25 MG AT BEDTIME
     Route: 048
     Dates: start: 20090116, end: 20090317
  8. TOPAMAX [Concomitant]
     Dosage: 100 MG, AT BEDTIME
     Route: 048
     Dates: start: 20090115, end: 20090315
  9. KLONOPIN [Concomitant]
     Dosage: 0.5 MG AT BEDTIME
     Route: 048
     Dates: start: 20090120

REACTIONS (7)
  - HOMICIDE [None]
  - DYSARTHRIA [None]
  - DEPRESSED MOOD [None]
  - POSTPARTUM DEPRESSION [None]
  - MENTAL DISORDER [None]
  - DISORIENTATION [None]
  - AGGRESSION [None]
